FAERS Safety Report 6155431-9 (Version None)
Quarter: 2009Q2

REPORT INFORMATION
  Report Type: 
  Country: None (occurrence: None)
  Receive Date: 20090409
  Receipt Date: 20090116
  Transmission Date: 20091009
  Serious: Yes (Hospitalization)
  Sender: FDA-Public Use
  Company Number: DL2009007

PATIENT
  Age: 29 Year
  Sex: Female

DRUGS (3)
  1. MIFEPREX [Suspect]
     Indication: ABORTION INDUCED
     Dosage: 200 MG, ORAL
     Route: 048
     Dates: start: 20080607
  2. MISOPROSTOL [Suspect]
     Indication: ABORTION INDUCED
     Dosage: 800 MCG, BUCCAL
     Route: 002
     Dates: start: 20080608
  3. DOXYCYCLINE [Concomitant]

REACTIONS (2)
  - HAEMORRHAGE [None]
  - HYPOVOLAEMIC SHOCK [None]
